FAERS Safety Report 9285714 (Version 1)
Quarter: 2013Q2

REPORT INFORMATION
  Report Type: Spontaneous
  Country: US (occurrence: None)
  Receive Date: 20130507
  Receipt Date: 20130507
  Transmission Date: 20140414
  Serious: Yes (Other)
  Sender: FDA-Public Use
  Company Number: US-011593

PATIENT
  Sex: Male

DRUGS (1)
  1. PROSED/DS [Suspect]
     Indication: URINARY TRACT INFECTION
     Dosage: 1 TABLET 4 X DAY ORAL
     Route: 048
     Dates: start: 2007

REACTIONS (3)
  - Aspartate aminotransferase increased [None]
  - Alanine aminotransferase increased [None]
  - Blood alkaline phosphatase increased [None]
